FAERS Safety Report 14333965 (Version 5)
Quarter: 2018Q2

REPORT INFORMATION
  Report Type: Spontaneous
  Country: ES (occurrence: ES)
  Receive Date: 20171228
  Receipt Date: 20180501
  Transmission Date: 20180711
  Serious: Yes (Life-Threatening, Hospitalization, Other)
  Sender: FDA-Public Use
  Company Number: ES-ALEXION-A201713281

PATIENT
  Age: 22 Year
  Sex: Male
  Weight: 67 kg

DRUGS (12)
  1. SOLIRIS [Suspect]
     Active Substance: ECULIZUMAB
     Indication: ATYPICAL HAEMOLYTIC URAEMIC SYNDROME
     Dosage: 900 UNK, QW
     Route: 042
     Dates: start: 20171004, end: 20171018
  2. SOLIRIS [Suspect]
     Active Substance: ECULIZUMAB
     Dosage: 1200 MG, EVERY 14 DAYS
     Route: 065
     Dates: start: 20171102
  3. BEXSERO [Suspect]
     Active Substance: MENINGOCOCCAL GROUP B VACCINE
     Indication: MENINGOCOCCAL IMMUNISATION
     Dosage: 1 DF, SINGLE
     Route: 058
     Dates: start: 20171004, end: 20171004
  4. PREDNISONA [Suspect]
     Active Substance: PREDNISONE
     Indication: HAEMOLYTIC URAEMIC SYNDROME
     Dosage: 10 MG, QD
     Route: 048
     Dates: start: 20171011, end: 20171018
  5. HAEMOPHILUS INFLUENZAE TYPE B [Concomitant]
     Active Substance: HAEMOPHILUS INFLUENZAE TYPE B
     Indication: PROPHYLAXIS
     Dosage: UNK
     Route: 065
     Dates: start: 20171004, end: 20171004
  6. BEXSERO [Suspect]
     Active Substance: MENINGOCOCCAL GROUP B VACCINE
     Indication: PROPHYLAXIS
  7. FUROSEMIDA                         /00032601/ [Concomitant]
     Active Substance: FUROSEMIDE
     Indication: HAEMOLYTIC URAEMIC SYNDROME
     Dosage: 80 MG, QD
     Route: 048
     Dates: start: 20171011, end: 20171031
  8. CEFTRIAXONE. [Concomitant]
     Active Substance: CEFTRIAXONE
     Indication: MENINGOCOCCAL INFECTION
     Dosage: 1 G, QD
     Route: 065
     Dates: start: 20171004, end: 20171019
  9. CEFTRIAXONE. [Concomitant]
     Active Substance: CEFTRIAXONE
     Indication: PROPHYLAXIS
     Dosage: 1 G, QD
     Route: 042
     Dates: start: 20171004, end: 20171012
  10. PNEUMOCOCCAL VACCINE POLYVALENT NOS [Concomitant]
     Active Substance: PNEUMOCOCCAL VACCINE POLYVALENT
     Indication: PROPHYLAXIS
     Dosage: UNK
     Route: 065
     Dates: start: 20171004, end: 20171004
  11. COLCHICINE. [Concomitant]
     Active Substance: COLCHICINE
     Indication: PRODUCT USED FOR UNKNOWN INDICATION
     Dosage: UNK
     Route: 065
  12. CEFTRIAXONE. [Concomitant]
     Active Substance: CEFTRIAXONE
     Dosage: 1 G, QD
     Route: 042
     Dates: start: 20171031, end: 20171109

REACTIONS (3)
  - Meningococcal bacteraemia [Recovered/Resolved]
  - Hypervolaemia [Unknown]
  - Cardiac failure [Unknown]

NARRATIVE: CASE EVENT DATE: 20171031
